FAERS Safety Report 18104133 (Version 1)
Quarter: 2020Q3

REPORT INFORMATION
  Report Type: Spontaneous
  Country: US (occurrence: US)
  Receive Date: 20200801
  Receipt Date: 20200801
  Transmission Date: 20201103
  Serious: No
  Sender: FDA-Public Use
  Company Number: None

PATIENT
  Age: 30 Year
  Sex: Male
  Weight: 70 kg

DRUGS (2)
  1. MOMETASONE FUROATE MONOHYDRATE NASAL SPRAY [Suspect]
     Active Substance: MOMETASONE FUROATE MONOHYDRATE
     Dosage: ?          OTHER STRENGTH:MCG;QUANTITY:120 SPRAY(S);?
     Route: 055
     Dates: start: 20200701
  2. MOMETASONE FUROATE MONOHYDRATE NASAL SPRAY [Suspect]
     Active Substance: MOMETASONE FUROATE MONOHYDRATE
     Dosage: ?          OTHER STRENGTH:MCG;QUANTITY:120 SPRAY(S);?
     Route: 055
     Dates: start: 20190416, end: 20200701

REACTIONS (1)
  - Dyspnoea [None]

NARRATIVE: CASE EVENT DATE: 20200731
